FAERS Safety Report 4771340-1 (Version None)
Quarter: 2005Q3

REPORT INFORMATION
  Report Type: 
  Country: None (occurrence: None)
  Receive Date: 20050914
  Receipt Date: 20050830
  Transmission Date: 20060218
  Serious: Yes (Hospitalization)
  Sender: FDA-Public Use
  Company Number: USA031255551

PATIENT
  Age: 87 Year
  Sex: Female
  Weight: 58 kg

DRUGS (6)
  1. FORTEO [Suspect]
     Indication: OSTEOPOROSIS
     Dosage: 20 UG/1 DAY
     Dates: start: 20031101
  2. LIPITOR [Concomitant]
  3. VITAMINS [Concomitant]
  4. OSCAL (CALCIUM CARBONATE) [Concomitant]
  5. CALMAG D [Concomitant]
  6. BIOGLAN SOLGAR SIBERIAN (GINSENG) [Concomitant]

REACTIONS (25)
  - BACK DISORDER [None]
  - BACK PAIN [None]
  - BLOOD PRESSURE INCREASED [None]
  - CARPAL TUNNEL SYNDROME [None]
  - COLLAGEN DISORDER [None]
  - CONDITION AGGRAVATED [None]
  - CONSTIPATION [None]
  - DIZZINESS [None]
  - DRY SKIN [None]
  - FALL [None]
  - FEAR [None]
  - HYPOKINESIA [None]
  - INJECTION SITE ERYTHEMA [None]
  - INJECTION SITE HAEMORRHAGE [None]
  - INJECTION SITE VESICLES [None]
  - MALAISE [None]
  - MUSCLE SPASMS [None]
  - NERVOUSNESS [None]
  - PAIN IN EXTREMITY [None]
  - PERSONALITY CHANGE [None]
  - PHARMACEUTICAL PRODUCT COMPLAINT [None]
  - PRURITUS [None]
  - SKIN DISCOLOURATION [None]
  - SKIN DISORDER [None]
  - SKIN TIGHTNESS [None]
